FAERS Safety Report 7504416-6 (Version None)
Quarter: 2011Q2

REPORT INFORMATION
  Report Type: 
  Country: None (occurrence: None)
  Receive Date: 20110525
  Receipt Date: 20110517
  Transmission Date: 20111010
  Serious: Yes (Hospitalization)
  Sender: FDA-Public Use
  Company Number: BR-BAXTER-2011BH016522

PATIENT
  Age: 18 Year
  Sex: Female
  Weight: 66 kg

DRUGS (8)
  1. GAMMAGARD LIQUID [Suspect]
     Indication: OFF LABEL USE
     Route: 042
     Dates: start: 20110503, end: 20110508
  2. CERAZETTE [Concomitant]
     Indication: CONTRACEPTION
     Route: 048
  3. MESTINON [Concomitant]
     Indication: CHOLINESTERASE INHIBITION
     Route: 048
  4. IMURAN [Concomitant]
     Indication: MYASTHENIA GRAVIS
     Route: 048
  5. MYTELASE [Concomitant]
     Indication: PRODUCT USED FOR UNKNOWN INDICATION
     Route: 048
  6. PREDNISONE [Concomitant]
     Indication: PRODUCT USED FOR UNKNOWN INDICATION
     Route: 048
  7. PANTOPRAZOLE [Concomitant]
     Indication: GASTRITIS
     Route: 048
  8. GAMMAGARD LIQUID [Suspect]
     Indication: MYASTHENIA GRAVIS
     Route: 042
     Dates: start: 20110503, end: 20110508

REACTIONS (4)
  - ERYTHEMA [None]
  - INJECTION SITE PRURITUS [None]
  - COUGH [None]
  - PRURITUS GENERALISED [None]
